FAERS Safety Report 23651507 (Version 5)
Quarter: 2024Q2

REPORT INFORMATION
  Report Type: Spontaneous
  Country: AT (occurrence: AT)
  Receive Date: 20240320
  Receipt Date: 20240530
  Transmission Date: 20240716
  Serious: Yes (Death, Other)
  Sender: FDA-Public Use
  Company Number: AT-JNJFOC-20240348871

PATIENT
  Age: 65 Year
  Sex: Female
  Weight: 27.2 kg

DRUGS (5)
  1. STELARA [Suspect]
     Active Substance: USTEKINUMAB
     Indication: Crohn^s disease
     Dosage: TREATMENT DURATION: 3 AND HALF YEARS   (20-APR-2020
     Route: 058
     Dates: end: 20230904
  2. STELARA [Suspect]
     Active Substance: USTEKINUMAB
     Dosage: THERAPY START DATE : 20/APR/2020
     Route: 040
  3. DULXETINE [Concomitant]
     Indication: Depression
  4. EUTHYROX [Concomitant]
     Active Substance: LEVOTHYROXINE SODIUM
     Indication: Hypothyroidism
  5. SIMVASTATIN [Concomitant]
     Active Substance: SIMVASTATIN
     Indication: Dyslipidaemia

REACTIONS (5)
  - Lymphocytic leukaemia [Fatal]
  - Central nervous system leukaemia [Fatal]
  - Febrile neutropenia [Recovered/Resolved]
  - Leukaemia [Unknown]
  - Lymphoma [Unknown]

NARRATIVE: CASE EVENT DATE: 20180801
